FAERS Safety Report 6336975-3 (Version None)
Quarter: 2009Q3

REPORT INFORMATION
  Report Type: 
  Country: None (occurrence: None)
  Receive Date: 20090901
  Receipt Date: 20090821
  Transmission Date: 20100115
  Serious: Yes (Death, Hospitalization)
  Sender: FDA-Public Use
  Company Number: PL-SANOFI-SYNTHELABO-F01200900729

PATIENT
  Sex: Male

DRUGS (6)
  1. TELMISARTAN [Concomitant]
     Dosage: UNK
  2. HYDROCHLOROTHIAZIDE [Concomitant]
     Dosage: UNK
  3. ATENOLOL [Concomitant]
     Dosage: UNK
     Dates: end: 20090508
  4. METOPROLOL TARTRATE [Concomitant]
     Dosage: UNK
     Dates: end: 20090508
  5. TRANDOLAPRIL [Concomitant]
     Dosage: UNK
     Dates: end: 20090508
  6. LEUPROLIDE ACETATE [Suspect]
     Indication: PROSTATE CANCER
     Dosage: 22.5 MG
     Route: 058
     Dates: start: 20090113, end: 20090113

REACTIONS (2)
  - PULMONARY EMBOLISM [None]
  - PULMONARY HYPERTENSION [None]
